FAERS Safety Report 11807951 (Version 1)
Quarter: 2015Q4

REPORT INFORMATION
  Report Type: Spontaneous
  Country: FR (occurrence: FR)
  Receive Date: 20151207
  Receipt Date: 20151207
  Transmission Date: 20160305
  Serious: Yes (Life-Threatening)
  Sender: FDA-Public Use
  Company Number: FR-FRESENIUS KABI-FK201506331

PATIENT
  Age: 18 Year
  Sex: Female

DRUGS (6)
  1. PROPOFOL FRESENIUS (NOT SPECIFIED) [Suspect]
     Active Substance: PROPOFOL
     Indication: AMYGDALOTOMY
     Route: 042
     Dates: start: 20151020, end: 20151020
  2. CELOCURINE [Suspect]
     Active Substance: SUCCINYLCHOLINE CHLORIDE
     Indication: AMYGDALOTOMY
     Route: 042
     Dates: start: 20151020, end: 20151020
  3. SUFENTANIL MERCK [Suspect]
     Active Substance: SUFENTANIL
     Indication: AMYGDALOTOMY
     Route: 042
     Dates: start: 20151020, end: 20151020
  4. ESMERON [Suspect]
     Active Substance: ROCURONIUM BROMIDE
     Indication: AMYGDALOTOMY
     Route: 042
     Dates: start: 20151020, end: 20151020
  5. KETAMINE PANPHARMA [Suspect]
     Active Substance: KETAMINE
     Indication: AMYGDALOTOMY
     Route: 042
     Dates: start: 20151020, end: 20151020
  6. DEXAMETHASONE PHPSPHATE SODIQUE QUALIMED [Suspect]
     Active Substance: DEXAMETHASONE SODIUM PHOSPHATE
     Indication: AMYGDALOTOMY
     Route: 042
     Dates: start: 20151020, end: 20151020

REACTIONS (4)
  - Anaphylactic shock [Recovered/Resolved]
  - Rash [Recovered/Resolved]
  - Bronchospasm [Recovered/Resolved]
  - Oxygen saturation decreased [Recovered/Resolved]

NARRATIVE: CASE EVENT DATE: 20151020
